FAERS Safety Report 21388932 (Version 1)
Quarter: 2022Q3

REPORT INFORMATION
  Report Type: Spontaneous
  Country: US (occurrence: None)
  Receive Date: 20220929
  Receipt Date: 20220929
  Transmission Date: 20221027
  Serious: No
  Sender: FDA-Public Use
  Company Number: 2022A303689

PATIENT
  Age: 751 Month
  Sex: Female

DRUGS (1)
  1. BUDESONIDE\FORMOTEROL\GLYCOPYRRONIUM [Suspect]
     Active Substance: BUDESONIDE\FORMOTEROL\GLYCOPYRRONIUM
     Indication: Asthma
     Dosage: 160/9/4.8 MCG TWO PUFFS TWICE
     Route: 055
     Dates: start: 2022

REACTIONS (10)
  - Asthma [Recovered/Resolved]
  - COVID-19 [Recovered/Resolved]
  - Dyspnoea [Unknown]
  - Lung disorder [Unknown]
  - Cough [Not Recovered/Not Resolved]
  - Device delivery system issue [Recovered/Resolved]
  - Device use issue [Recovered/Resolved]
  - Wrong technique in device usage process [Unknown]
  - Off label use [Unknown]
  - Drug ineffective [Recovered/Resolved]

NARRATIVE: CASE EVENT DATE: 20220701
